FAERS Safety Report 13009431 (Version 1)
Quarter: 2016Q4

REPORT INFORMATION
  Report Type: Spontaneous
  Country: US (occurrence: US)
  Receive Date: 20161208
  Receipt Date: 20161208
  Transmission Date: 20170207
  Serious: No
  Sender: FDA-Public Use
  Company Number: US-PERRIGO-16US015686

PATIENT
  Age: 76 Year
  Sex: Female
  Weight: 74.83 kg

DRUGS (5)
  1. DERMAREST PSORIASIS MEDICATED [Suspect]
     Active Substance: SALICYLIC ACID
     Indication: PSORIASIS
     Dosage: UNKNOWN, UNKNOWN
     Route: 061
     Dates: start: 201604, end: 20160423
  2. ANTIHYPERTENSIVES [Concomitant]
     Active Substance: UNSPECIFIED INGREDIENT
     Indication: HYPERTENSION
     Dosage: UNK
     Route: 065
  3. MINOXIDIL. [Suspect]
     Active Substance: MINOXIDIL
     Indication: ALOPECIA
     Dosage: 1 ML, BID
     Route: 061
     Dates: start: 20160413, end: 20160425
  4. CENTRUM                            /07499601/ [Concomitant]
     Indication: SUPPLEMENTATION THERAPY
     Dosage: UNK
     Route: 065
  5. VITAMIN D                          /00107901/ [Concomitant]
     Active Substance: ERGOCALCIFEROL
     Indication: SUPPLEMENTATION THERAPY
     Dosage: UNK
     Route: 065
     Dates: start: 2015

REACTIONS (2)
  - Drug administration error [Recovered/Resolved]
  - Condition aggravated [Not Recovered/Not Resolved]

NARRATIVE: CASE EVENT DATE: 20160413
